FAERS Safety Report 7799855-2 (Version None)
Quarter: 2011Q4

REPORT INFORMATION
  Report Type: 
  Country: None (occurrence: None)
  Receive Date: 20111004
  Receipt Date: 20110926
  Transmission Date: 20120403
  Serious: Yes (Hospitalization, Other)
  Sender: FDA-Public Use
  Company Number: KAD201109-000018

PATIENT
  Sex: Female

DRUGS (3)
  1. RIBAVIRIN [Suspect]
     Indication: HEPATITIS C
     Dates: start: 20080101
  2. RIBAVIRIN [Suspect]
     Indication: HEPATITIS C
     Dates: start: 20080101
  3. PEG-INTRON [Suspect]
     Indication: HEPATITIS C
     Dosage: ONCE A WEEK
     Dates: start: 20080101

REACTIONS (11)
  - SCAR [None]
  - ASTHENIA [None]
  - MALAISE [None]
  - DEHYDRATION [None]
  - WEIGHT DECREASED [None]
  - NAUSEA [None]
  - DRUG RESISTANCE [None]
  - LIVER DISORDER [None]
  - VOMITING [None]
  - APHAGIA [None]
  - HEPATITIS C RNA INCREASED [None]
